FAERS Safety Report 21695783 (Version 1)
Quarter: 2022Q4

REPORT INFORMATION
  Report Type: Spontaneous
  Country: US (occurrence: US)
  Receive Date: 20221207
  Receipt Date: 20221207
  Transmission Date: 20230113
  Serious: No
  Sender: FDA-Public Use
  Company Number: US-MYLANLABS-2022M1131707

PATIENT
  Age: 17 Year
  Sex: Female
  Weight: 58.97 kg

DRUGS (2)
  1. ISOTRETINOIN [Suspect]
     Active Substance: ISOTRETINOIN
     Indication: Acne
     Dosage: 1 DOSAGE FORM, QD (FIRST MONTH: 1 CAPSULE A DAY, SECOND AND THIRD MONTH : 2 CAPSULES A DAY)
     Route: 048
     Dates: start: 202206
  2. ISOTRETINOIN [Suspect]
     Active Substance: ISOTRETINOIN
     Dosage: 2 DOSAGE FORM, QD (FIRST MONTH: 1 CAPSULE A DAY, SECOND AND THIRD MONTH : 2 CAPSULES A DAY)
     Route: 048
     Dates: start: 202207, end: 202209

REACTIONS (1)
  - Therapy cessation [Unknown]

NARRATIVE: CASE EVENT DATE: 20220901
